FAERS Safety Report 26113184 (Version 1)
Quarter: 2025Q4

REPORT INFORMATION
  Report Type: Spontaneous
  Country: US (occurrence: US)
  Receive Date: 20251202
  Receipt Date: 20251202
  Transmission Date: 20260117
  Serious: Yes (Hospitalization, Other)
  Sender: ALEMBIC
  Company Number: US-ALEMBIC PHARMACUETICALS LIMITED-2025SCAL001613

PATIENT

DRUGS (6)
  1. CHLORPROMAZINE HYDROCHLORIDE [Suspect]
     Active Substance: CHLORPROMAZINE HYDROCHLORIDE
     Indication: Agitation
     Dosage: UNK
     Route: 065
  2. CARBAMAZEPINE [Suspect]
     Active Substance: CARBAMAZEPINE
     Indication: Schizoaffective disorder bipolar type
     Dosage: UNK
     Route: 065
  3. PERPHENAZINE [Suspect]
     Active Substance: PERPHENAZINE
     Indication: Schizoaffective disorder bipolar type
     Dosage: UNK
     Route: 065
  4. HALOPERIDOL [Suspect]
     Active Substance: HALOPERIDOL
     Indication: Agitation
     Dosage: UNK
     Route: 065
  5. LORAZEPAM [Suspect]
     Active Substance: LORAZEPAM
     Indication: Agitation
     Dosage: UNK
     Route: 065
  6. DIPHENHYDRAMINE [Suspect]
     Active Substance: DIPHENHYDRAMINE
     Indication: Agitation
     Dosage: UNK
     Route: 065

REACTIONS (10)
  - Hypothermia [Recovered/Resolved]
  - Unresponsive to stimuli [Recovered/Resolved]
  - Feeling cold [Recovered/Resolved]
  - Shock [Recovered/Resolved]
  - Body temperature decreased [Recovered/Resolved]
  - Blood pressure decreased [Recovered/Resolved]
  - Respiratory rate decreased [Recovered/Resolved]
  - Oxygen saturation decreased [Recovered/Resolved]
  - Encephalopathy [Recovered/Resolved]
  - Treatment noncompliance [Unknown]
